FAERS Safety Report 22689664 (Version 6)
Quarter: 2024Q2

REPORT INFORMATION
  Report Type: Report from Study
  Country: US (occurrence: US)
  Receive Date: 20230711
  Receipt Date: 20240402
  Transmission Date: 20240716
  Serious: Yes (Death, Life-Threatening, Hospitalization)
  Sender: FDA-Public Use
  Company Number: US-REGENERON PHARMACEUTICALS, INC.-2023-081389

PATIENT
  Age: 78 Year
  Sex: Male

DRUGS (12)
  1. NEZASTOMIG [Suspect]
     Active Substance: NEZASTOMIG
     Indication: Prostate cancer
     Dosage: 100 MG, QW
     Route: 042
     Dates: start: 20230515, end: 20230613
  2. CEMIPLIMAB [Suspect]
     Active Substance: CEMIPLIMAB
     Indication: Prostate cancer
     Dosage: 350 MG, Q3W
     Route: 042
     Dates: start: 20230605, end: 20230605
  3. SARILUMAB [Suspect]
     Active Substance: SARILUMAB
     Indication: Prostate cancer
     Dosage: 350 MG, Q3W
     Route: 065
     Dates: start: 20230605, end: 20230605
  4. SODIUM CHLORIDE [Concomitant]
     Active Substance: SODIUM CHLORIDE
     Indication: Diarrhoea
     Dosage: 100 ML PER HOUR
     Route: 042
     Dates: start: 20230601, end: 20230703
  5. ACETAMINOPHEN [Concomitant]
     Active Substance: ACETAMINOPHEN
     Indication: Prophylaxis
     Dosage: 650 MG, PRN
     Route: 048
     Dates: start: 20230109, end: 20230628
  6. CHOLECALCIFEROL [Concomitant]
     Active Substance: CHOLECALCIFEROL
     Indication: Supplementation therapy
     Dosage: 2000 IU, QD
     Route: 048
     Dates: start: 20220504
  7. DENOSUMAB [Concomitant]
     Active Substance: DENOSUMAB
     Indication: Prostate cancer
     Dosage: 120 MG, Q4W
     Route: 058
     Dates: start: 20230413
  8. LEUPROLIDE ACETATE [Concomitant]
     Active Substance: ISOPROPYL ALCOHOL\LEUPROLIDE ACETATE
     Indication: Prostate cancer
     Dosage: 22.5 MG, Q3M
     Route: 058
     Dates: start: 2011
  9. SENOKOT-S [Concomitant]
     Active Substance: DOCUSATE SODIUM\SENNOSIDES
     Indication: Constipation
     Dosage: 8.5 MG, BID
     Route: 048
     Dates: start: 20230515, end: 20230614
  10. AISFLAT [ALUMINIUM HYDROXIDE;MAGNESIUM HYDROXIDE] [Concomitant]
     Indication: Gastrooesophageal reflux disease
     Dosage: 10 ML, QID
     Route: 048
     Dates: start: 20230606
  11. METRONIDAZOLE BENZOATE [Concomitant]
     Active Substance: METRONIDAZOLE BENZOATE
     Indication: Diarrhoea
     Dosage: 500 MG, Q8H
     Route: 042
     Dates: start: 20230601, end: 20230602
  12. CIPROFLOXACIN [Concomitant]
     Active Substance: CIPROFLOXACIN
     Indication: Diarrhoea
     Dosage: 400 MG, AT 200 ML AN HR - ONCE
     Route: 042
     Dates: start: 20230602, end: 20230602

REACTIONS (2)
  - Hepatitis [Fatal]
  - Haemophagocytic lymphohistiocytosis [Fatal]

NARRATIVE: CASE EVENT DATE: 20230621
